FAERS Safety Report 8318572 (Version 7)
Quarter: 2020Q4

REPORT INFORMATION
  Report Type: Spontaneous
  Country: BR (occurrence: BR)
  Receive Date: 20120103
  Receipt Date: 20201023
  Transmission Date: 20210114
  Serious: Yes (Other)
  Sender: FDA-Public Use
  Company Number: BR-PFIZER INC-2010150399

PATIENT
  Age: 30 Year
  Sex: Female
  Weight: 92 kg

DRUGS (15)
  1. ZETRON [Concomitant]
     Indication: DEPRESSION
     Dosage: 150 MG, 1X/DAY
     Dates: start: 2008
  2. GEODON [Suspect]
     Active Substance: ZIPRASIDONE HYDROCHLORIDE\ZIPRASIDONE MESYLATE
     Dosage: 80 MG, 1X/DAY
     Route: 048
     Dates: start: 2007
  3. GEODON [Suspect]
     Active Substance: ZIPRASIDONE HYDROCHLORIDE\ZIPRASIDONE MESYLATE
     Dosage: 40 MG, 1X/DAY
     Route: 048
  4. SIBUTRAMINE [Suspect]
     Active Substance: SIBUTRAMINE
     Dosage: UNK
  5. SERTRALINE [SERTRALINE HYDROCHLORIDE] [Concomitant]
     Active Substance: SERTRALINE HYDROCHLORIDE
     Indication: DEPRESSION
     Dosage: UNK
  6. TOPIRAMATE. [Concomitant]
     Active Substance: TOPIRAMATE
     Indication: SCHIZOAFFECTIVE DISORDER
     Dosage: UNK
  7. GEODON [Suspect]
     Active Substance: ZIPRASIDONE HYDROCHLORIDE\ZIPRASIDONE MESYLATE
     Indication: SCHIZOAFFECTIVE DISORDER BIPOLAR TYPE
     Dosage: 40 MG, 1X/DAY
     Route: 048
  8. FLUOXETINE [Concomitant]
     Active Substance: FLUOXETINE HYDROCHLORIDE
     Indication: DEPRESSION
     Dosage: 20 MG (ONE TABLET AND HALF), 1X/DAY
     Dates: start: 201108
  9. LAMOTRIGINE. [Concomitant]
     Active Substance: LAMOTRIGINE
     Indication: AFFECTIVE DISORDER
     Dosage: 125 MG (TWO TABLETS AND HALF), 1X/DAY
     Dates: start: 2005
  10. LEXOTAN [Concomitant]
     Active Substance: BROMAZEPAM
     Indication: DYSPHAGIA
     Dosage: UNK
  11. WELLBUTRIN [Concomitant]
     Active Substance: BUPROPION HYDROCHLORIDE
     Indication: SCHIZOAFFECTIVE DISORDER
     Dosage: UNK
  12. GEODON [Suspect]
     Active Substance: ZIPRASIDONE HYDROCHLORIDE\ZIPRASIDONE MESYLATE
     Dosage: 120 MG, DAILY
  13. LEXOTAN [Concomitant]
     Active Substance: BROMAZEPAM
     Indication: SCHIZOAFFECTIVE DISORDER
  14. GEODON [Suspect]
     Active Substance: ZIPRASIDONE HYDROCHLORIDE\ZIPRASIDONE MESYLATE
     Dosage: 80 MG, 1X/DAY
     Dates: start: 2006
  15. SAPHRIS [Suspect]
     Active Substance: ASENAPINE MALEATE
     Dosage: UNK

REACTIONS (24)
  - Autoimmune thyroiditis [Unknown]
  - Appetite disorder [Unknown]
  - Malaise [Unknown]
  - Vitamin D decreased [Unknown]
  - Metabolic disorder [Unknown]
  - Dysplasia [Unknown]
  - Extrapyramidal disorder [Not Recovered/Not Resolved]
  - Asthenia [Unknown]
  - Weight increased [Recovered/Resolved]
  - Parkinson^s disease [Unknown]
  - Dysphagia [Unknown]
  - Depression [Not Recovered/Not Resolved]
  - Hypoglycaemia [Unknown]
  - Feeling abnormal [Recovered/Resolved]
  - Hypothyroidism [Unknown]
  - Drug dependence [Unknown]
  - Drug ineffective [Unknown]
  - Schizoaffective disorder [Unknown]
  - Apathy [Unknown]
  - Loss of personal independence in daily activities [Unknown]
  - Eating disorder [Unknown]
  - Weight decreased [Unknown]
  - Glucose tolerance impaired [Unknown]
  - Panic reaction [Unknown]

NARRATIVE: CASE EVENT DATE: 2006
